FAERS Safety Report 10159425 (Version 1)
Quarter: 2014Q2

REPORT INFORMATION
  Report Type: Spontaneous
  Country: US (occurrence: US)
  Receive Date: 20140508
  Receipt Date: 20140508
  Transmission Date: 20141212
  Serious: No
  Sender: FDA-Public Use
  Company Number: US-B.I. PHARMACEUTICALS,INC./RIDGEFIELD-2014-BI-19398BP

PATIENT
  Sex: Female

DRUGS (3)
  1. MELOXICAM [Suspect]
     Indication: INFLAMMATION
     Route: 065
  2. HIGH BLOOD PRESSURE MEDICINE [Concomitant]
     Route: 065
  3. NEURONTIN [Concomitant]
     Indication: MUSCLE SPASMS
     Route: 065

REACTIONS (1)
  - Off label use [Unknown]
